FAERS Safety Report 18246992 (Version 2)
Quarter: 2020Q3

REPORT INFORMATION
  Report Type: Spontaneous
  Country: JP (occurrence: JP)
  Receive Date: 20200909
  Receipt Date: 20200919
  Transmission Date: 20201103
  Serious: Yes (Life-Threatening, Hospitalization, Other)
  Sender: FDA-Public Use
  Company Number: JP-ACCORD-200196

PATIENT
  Age: 51 Year
  Sex: Male
  Weight: 56 kg

DRUGS (1)
  1. CISPLATIN. [Suspect]
     Active Substance: CISPLATIN
     Indication: NASOPHARYNGEAL CANCER
     Dosage: CUMULATIVE DOSE : 220 TOTAL. FROM 09?APR?1991 TO 13?APR?1991
     Dates: start: 19910527, end: 19910531

REACTIONS (2)
  - Polyneuropathy [Unknown]
  - Autonomic dysreflexia [Recovered/Resolved]

NARRATIVE: CASE EVENT DATE: 199207
